FAERS Safety Report 25652624 (Version 1)
Quarter: 2025Q3

REPORT INFORMATION
  Report Type: Spontaneous
  Country: JP (occurrence: JP)
  Receive Date: 20250807
  Receipt Date: 20250807
  Transmission Date: 20251020
  Serious: Yes (Other)
  Sender: ABBVIE
  Company Number: JP-GSKJP-JP2025085222

PATIENT
  Sex: Male

DRUGS (1)
  1. BOTOX [Suspect]
     Active Substance: ONABOTULINUMTOXINA
     Indication: Muscle spasms
     Dosage: 500 IU, 1D
     Route: 065
     Dates: start: 20250630

REACTIONS (2)
  - Pneumonia aspiration [Unknown]
  - Pyrexia [Unknown]

NARRATIVE: CASE EVENT DATE: 20250705
